FAERS Safety Report 24304292 (Version 1)
Quarter: 2024Q3

REPORT INFORMATION
  Report Type: Report from Study
  Country: US (occurrence: US)
  Receive Date: 20240910
  Receipt Date: 20240910
  Transmission Date: 20241017
  Serious: Yes (Other)
  Sender: ABBVIE
  Company Number: US-ABBVIE-5902429

PATIENT
  Age: 53 Year
  Sex: Female

DRUGS (1)
  1. HUMIRA [Suspect]
     Active Substance: ADALIMUMAB
     Indication: Rheumatoid arthritis
     Dosage: CITRATE FREE
     Route: 058
     Dates: start: 20240715, end: 20240812

REACTIONS (9)
  - Pulmonary oedema [Recovering/Resolving]
  - Sinusitis [Recovering/Resolving]
  - Upper respiratory tract infection [Not Recovered/Not Resolved]
  - Nervousness [Not Recovered/Not Resolved]
  - Dehydration [Recovering/Resolving]
  - Chest pain [Recovering/Resolving]
  - Electrocardiogram abnormal [Unknown]
  - Electrocardiogram abnormal [Unknown]
  - Troponin increased [Unknown]

NARRATIVE: CASE EVENT DATE: 20240815
